FAERS Safety Report 16144093 (Version 1)
Quarter: 2019Q2

REPORT INFORMATION
  Report Type: Report from Study
  Country: US (occurrence: US)
  Receive Date: 20190401
  Receipt Date: 20190401
  Transmission Date: 20190711
  Serious: Yes (Hospitalization)
  Sender: FDA-Public Use
  Company Number: US-EISAI MEDICAL RESEARCH-EC-2019-053273

PATIENT
  Sex: Male
  Weight: 105.2 kg

DRUGS (23)
  1. LEVOTHYROXINE. [Concomitant]
     Active Substance: LEVOTHYROXINE
  2. VITAMIN D3 [Concomitant]
     Active Substance: CHOLECALCIFEROL
  3. HYDROCORTISONE ACETATE. [Concomitant]
     Active Substance: HYDROCORTISONE ACETATE
  4. LUMIGAN [Concomitant]
     Active Substance: BIMATOPROST
  5. PROCTOZONE [Concomitant]
     Active Substance: HYDROCORTISONE
  6. CALCIUM [Concomitant]
     Active Substance: CALCIUM
  7. MINIPRESS [Concomitant]
     Active Substance: PRAZOSIN HYDROCHLORIDE
  8. LOSARTAN. [Concomitant]
     Active Substance: LOSARTAN
  9. ZOLPIDEM [Concomitant]
     Active Substance: ZOLPIDEM\ZOLPIDEM TARTRATE
  10. LENVIMA [Suspect]
     Active Substance: LENVATINIB
     Indication: RENAL CANCER
     Route: 048
     Dates: start: 20190228, end: 201903
  11. ATENOLOL. [Concomitant]
     Active Substance: ATENOLOL
  12. TAMSULOSIN [Concomitant]
     Active Substance: TAMSULOSIN
  13. COZAAR [Concomitant]
     Active Substance: LOSARTAN POTASSIUM
  14. PRAZOSIN. [Concomitant]
     Active Substance: PRAZOSIN
  15. GLIMEPIRIDE. [Concomitant]
     Active Substance: GLIMEPIRIDE
  16. LASIX [Concomitant]
     Active Substance: FUROSEMIDE
  17. POTASSIUM CHLORIDE. [Concomitant]
     Active Substance: POTASSIUM CHLORIDE
  18. FUROSEMIDE. [Concomitant]
     Active Substance: FUROSEMIDE
  19. AFINITOR [Concomitant]
     Active Substance: EVEROLIMUS
  20. METFORMIN [Concomitant]
     Active Substance: METFORMIN HYDROCHLORIDE
  21. TRAMADOL. [Concomitant]
     Active Substance: TRAMADOL
  22. MULTIVITAMINS [Concomitant]
     Active Substance: VITAMINS
  23. CABOMETYX [Concomitant]
     Active Substance: CABOZANTINIB S-MALATE

REACTIONS (12)
  - Sensory disturbance [Unknown]
  - Oedema [Unknown]
  - Gait disturbance [Unknown]
  - Oral pain [Unknown]
  - Dehydration [Unknown]
  - Blood pressure increased [Unknown]
  - Dyspnoea [Unknown]
  - Fatigue [Unknown]
  - Decreased appetite [Unknown]
  - Diarrhoea [Unknown]
  - Dry skin [Unknown]
  - Decreased appetite [Unknown]

NARRATIVE: CASE EVENT DATE: 2019
